FAERS Safety Report 5740492-9 (Version None)
Quarter: 2008Q2

REPORT INFORMATION
  Report Type: 
  Country: None (occurrence: None)
  Receive Date: 20080516
  Receipt Date: 20080505
  Transmission Date: 20081010
  Serious: Yes (Hospitalization, Other)
  Sender: FDA-Public Use
  Company Number: FR-ROCHE-499244

PATIENT
  Sex: Male

DRUGS (28)
  1. FUZEON [Suspect]
     Route: 058
     Dates: start: 20060901, end: 20061011
  2. FUZEON [Suspect]
     Dosage: FORM: INJECTABLE SOLUTION
     Route: 058
     Dates: start: 20061029, end: 20070511
  3. CYCLOSPORINE [Suspect]
     Indication: TRANSPLANT
     Route: 065
  4. COPEGUS [Concomitant]
     Indication: HEPATITIS C
     Dates: start: 20070117
  5. PEGASYS [Concomitant]
     Indication: HEPATITIS C
     Dates: start: 20070207
  6. PEGASYS [Concomitant]
     Dosage: EVERY THURSDAY
  7. INVIRASE [Concomitant]
     Dates: start: 20061029
  8. INVIRASE [Concomitant]
     Dosage: 2 IN MORNING, 2 AT LUNCH, 2 IN EVENING.
     Dates: start: 20061029
  9. REYATAZ [Concomitant]
     Dates: start: 20061029
  10. REYATAZ [Concomitant]
     Dosage: TWO IN THE EVENING
  11. EMTRIVA [Concomitant]
     Dosage: FORM: TABLET
     Dates: start: 20061029
  12. EMTRIVA [Concomitant]
     Dosage: TAKEN IN EVENING  DOSE; 50MG/DAY
  13. NEORAL [Concomitant]
  14. NEORAL [Concomitant]
  15. LASILIX [Concomitant]
     Dosage: TAKEN IN MORNING.
     Route: 048
  16. LASILIX [Concomitant]
     Route: 048
  17. LASILIX [Concomitant]
     Dosage: STRENGTH: 40MG. DOSAGE REGIMEN: ONE IN MORNING OR 2 PRN
     Route: 048
  18. TARDYFERON B9 [Concomitant]
  19. TARDYFERON B9 [Concomitant]
  20. TARDYFERON B9 [Concomitant]
  21. TARDYFERON B9 [Concomitant]
  22. REBETOL [Concomitant]
  23. REBETOL [Concomitant]
     Dosage: DOSE DECREASED
  24. CALCIDIA [Concomitant]
     Dosage: STRENGTH: 3.85 TAKEN IN MORNING
  25. NEORECORMON [Concomitant]
     Route: 058
  26. NOVOLOG MIX 70/30 [Concomitant]
     Dosage: TAKEN IN MORNING
  27. NOVOLOG MIX 70/30 [Concomitant]
     Dosage: TAKEN IN MORNING
  28. INSULATARD [Concomitant]

REACTIONS (10)
  - BILE DUCT OBSTRUCTION [None]
  - GAMMA-GLUTAMYLTRANSFERASE INCREASED [None]
  - JAUNDICE [None]
  - JAUNDICE CHOLESTATIC [None]
  - LIPASE INCREASED [None]
  - NODULE [None]
  - PANCREATITIS [None]
  - PLATELET COUNT DECREASED [None]
  - RENAL IMPAIRMENT [None]
  - SKIN REACTION [None]
